FAERS Safety Report 8060367-2 (Version None)
Quarter: 2012Q1

REPORT INFORMATION
  Report Type: 
  Country: None (occurrence: None)
  Receive Date: 20120120
  Receipt Date: 20120112
  Transmission Date: 20120608
  Serious: Yes (Other)
  Sender: FDA-Public Use
  Company Number: US-US-EMD SERONO, INC.-232287J08USA

PATIENT
  Sex: Female
  Weight: 54 kg

DRUGS (15)
  1. GABAPENTIN [Concomitant]
     Route: 048
     Dates: start: 20090101
  2. REBIF [Suspect]
     Indication: MULTIPLE SCLEROSIS
     Route: 058
     Dates: start: 20070129, end: 20080201
  3. GABAPENTIN [Concomitant]
     Indication: MULTIPLE SCLEROSIS
     Route: 048
     Dates: end: 20090101
  4. ZOLOFT [Concomitant]
     Indication: DEPRESSION
     Route: 048
     Dates: end: 20090101
  5. REBIF [Suspect]
     Route: 058
  6. DETROL LA [Concomitant]
     Indication: BLADDER DISORDER
     Dates: start: 20060101
  7. VERAPAMIL [Concomitant]
     Indication: MIGRAINE
     Route: 048
     Dates: start: 19980101
  8. DITROPAN [Concomitant]
     Route: 048
     Dates: start: 20090101
  9. FOSAMAX [Concomitant]
     Route: 048
  10. ENALAPRIL MALEATE [Concomitant]
     Indication: HYPERTENSION
     Route: 048
     Dates: start: 19760101
  11. DITROPAN [Concomitant]
     Indication: NEUROGENIC BLADDER
     Route: 048
     Dates: start: 20060101, end: 20090101
  12. UNSPECIFIED ANTIBIOTICS [Concomitant]
  13. REBIF [Suspect]
     Route: 058
     Dates: start: 20080201
  14. POTASSIUM CHLORIDE [Concomitant]
     Indication: BLOOD POTASSIUM DECREASED
     Dates: start: 20050101
  15. ZOLOFT [Concomitant]
     Route: 048
     Dates: start: 20090101

REACTIONS (4)
  - BLADDER DISORDER [None]
  - THROMBOSIS [None]
  - POST PROCEDURAL HAEMORRHAGE [None]
  - URETHRAL OBSTRUCTION [None]
